FAERS Safety Report 4629930-2 (Version None)
Quarter: 2005Q2

REPORT INFORMATION
  Report Type: 
  Country: None (occurrence: None)
  Receive Date: 20050408
  Receipt Date: 20041112
  Transmission Date: 20051028
  Serious: Yes (Other)
  Sender: FDA-Public Use
  Company Number: US-ROCHE-386324

PATIENT
  Age: 15 Year
  Sex: Female

DRUGS (2)
  1. ACCUTANE [Suspect]
     Indication: ACNE
     Route: 048
     Dates: start: 20031215, end: 20040523
  2. ACCUTANE [Suspect]
     Route: 048
     Dates: start: 20000615, end: 20000615

REACTIONS (5)
  - BLOOD CHOLESTEROL INCREASED [None]
  - BLOOD TRIGLYCERIDES INCREASED [None]
  - CD4/CD8 RATIO DECREASED [None]
  - DRUG HYPERSENSITIVITY [None]
  - PYREXIA [None]
